FAERS Safety Report 9680745 (Version 2)
Quarter: 2013Q4

REPORT INFORMATION
  Report Type: Spontaneous
  Country: IE (occurrence: IE)
  Receive Date: 20131111
  Receipt Date: 20131230
  Transmission Date: 20140711
  Serious: Yes (Hospitalization)
  Sender: FDA-Public Use
  Company Number: PHHY2013IE125646

PATIENT
  Age: 28 Year
  Sex: Female
  Weight: 56 kg

DRUGS (9)
  1. TOBI PODHALER [Suspect]
     Indication: BRONCHIECTASIS
     Dosage: 1 DF, DAILY
     Dates: start: 20130823
  2. TOBI PODHALER [Suspect]
     Indication: OFF LABEL USE
     Dosage: 1/4 TH DOSE UNK
     Dates: start: 20130824
  3. TOBI PODHALER [Suspect]
     Dosage: 1 DF, DAILY
     Dates: start: 20130825, end: 20130825
  4. SYMBICORT [Concomitant]
     Indication: ASTHMA
     Dosage: 400 2P, BID
     Route: 055
  5. SYMBICORT [Concomitant]
     Indication: BRONCHIECTASIS
  6. VENTOLIN [Concomitant]
     Indication: ASTHMA
     Dosage: UNK UKN, PRN
  7. VENTOLIN [Concomitant]
     Indication: BRONCHIECTASIS
  8. COMBIVENT [Concomitant]
     Indication: ASTHMA
     Dosage: UNK UKN, PRN
  9. COMBIVENT [Concomitant]
     Indication: BRONCHIECTASIS

REACTIONS (7)
  - Respiratory disorder [Recovered/Resolved]
  - Tachycardia [Recovered/Resolved]
  - Asthenia [Recovered/Resolved]
  - Dyspnoea [Recovered/Resolved]
  - Bronchospasm [Unknown]
  - Chest discomfort [Recovered/Resolved]
  - Dizziness [Recovered/Resolved]
